FAERS Safety Report 7109765 (Version 3)
Quarter: 2012Q4

REPORT INFORMATION
  Report Type: Report from Study
  Country: US (occurrence: US)
  Receive Date: 20090910
  Receipt Date: 20121221
  Transmission Date: 20130627
  Serious: Yes (Death)
  Sender: FDA-Public Use
  Company Number: US-BRISTOL-MYERS SQUIBB COMPANY-14760912

PATIENT
  Age: 52 Year
  Sex: Male
  Weight: 70.75 kg

DRUGS (11)
  1. IXABEPILONE [Suspect]
     Indication: NON-SMALL CELL LUNG CANCER
     Route: 042
     Dates: start: 20090629, end: 20090811
  2. CARBOPLATIN [Suspect]
     Indication: NON-SMALL CELL LUNG CANCER
     Route: 042
     Dates: start: 20090629, end: 20090811
  3. AVASTIN [Suspect]
     Indication: NON-SMALL CELL LUNG CANCER
     Route: 042
     Dates: start: 20090629, end: 20090811
  4. CIPRO [Concomitant]
     Dosage: HC .2%-1% Otic drops,inner ear canal
     Route: 061
     Dates: start: 20090811, end: 20090820
  5. MEGACE OS [Concomitant]
     Dosage: 1dosageform=40mg/10ml,1tablespoon
     Route: 048
     Dates: start: 20090728, end: 20090820
  6. COMPAZINE [Concomitant]
     Indication: NAUSEA
     Route: 048
     Dates: start: 20090630, end: 20090820
  7. VICODIN [Concomitant]
     Indication: PAIN
     Dosage: 1dosageform=5mg/500mg tab
     Route: 048
     Dates: start: 20090629, end: 20090820
  8. ALOXI [Concomitant]
     Indication: PREMEDICATION
     Route: 042
     Dates: start: 20090629, end: 20090811
  9. DECADRON [Concomitant]
     Route: 042
     Dates: start: 20090629, end: 20090811
  10. BENADRYL [Concomitant]
     Route: 042
     Dates: start: 20090629, end: 20090811
  11. FLEXERIL [Concomitant]

REACTIONS (1)
  - Death [Fatal]
